FAERS Safety Report 5645454-8 (Version None)
Quarter: 2008Q1

REPORT INFORMATION
  Report Type: 
  Country: None (occurrence: None)
  Receive Date: 20080229
  Receipt Date: 20070517
  Transmission Date: 20080703
  Serious: Yes (Hospitalization)
  Sender: FDA-Public Use
  Company Number: US-BRISTOL-MYERS SQUIBB COMPANY-13784236

PATIENT
  Age: 60 Year
  Sex: Female

DRUGS (4)
  1. PACLITAXEL [Suspect]
     Indication: OVARIAN CANCER
     Dates: start: 20070101
  2. CARBOPLATIN [Suspect]
     Indication: OVARIAN CANCER
     Dates: start: 20070101
  3. NEULASTA [Suspect]
     Indication: PROPHYLAXIS
     Route: 058
     Dates: start: 20070127
  4. PROCRIT [Concomitant]
     Dates: start: 20070101

REACTIONS (9)
  - ABDOMINAL PAIN [None]
  - ANAEMIA [None]
  - ANOREXIA [None]
  - BONE PAIN [None]
  - DEHYDRATION [None]
  - MALAISE [None]
  - MYALGIA [None]
  - NAUSEA [None]
  - URINARY TRACT INFECTION [None]
